FAERS Safety Report 18362610 (Version 2)
Quarter: 2023Q1

REPORT INFORMATION
  Report Type: Other
  Country: US (occurrence: None)
  Receive Date: 20201009
  Receipt Date: 20230220
  Transmission Date: 20230418
  Serious: Yes (Other)
  Sender: FDA-Public Use
  Company Number: US-ROCHE-2680094

PATIENT
  Age: 86 Year
  Sex: Female
  Weight: 51.756 kg

DRUGS (1)
  1. ACTEMRA [Suspect]
     Active Substance: TOCILIZUMAB
     Indication: Rheumatoid arthritis
     Dosage: THERAPY REMAINS ONGOING
     Route: 042

REACTIONS (3)
  - Macular degeneration [Not Recovered/Not Resolved]
  - Blindness [Unknown]
  - Diplopia [Unknown]
